FAERS Safety Report 23915287 (Version 4)
Quarter: 2024Q3

REPORT INFORMATION
  Report Type: Spontaneous
  Country: CA (occurrence: CA)
  Receive Date: 20240529
  Receipt Date: 20240813
  Transmission Date: 20241016
  Serious: Yes (Hospitalization, Other)
  Sender: PFIZER
  Company Number: CA-PFIZER INC-202400179494

PATIENT
  Age: 34 Year
  Sex: Male

DRUGS (3)
  1. ABRILADA [Suspect]
     Active Substance: ADALIMUMAB-AFZB
     Indication: Colitis ulcerative
     Dosage: 40 MG, WEEKLY
     Route: 058
     Dates: start: 2022, end: 20240524
  2. ABRILADA [Suspect]
     Active Substance: ADALIMUMAB-AFZB
     Indication: Crohn^s disease
     Dosage: 40 MG, WEEKLY
     Route: 058
     Dates: start: 20240804
  3. ENTYVIO [Concomitant]
     Active Substance: VEDOLIZUMAB
     Dosage: UNK

REACTIONS (6)
  - Haemoglobin decreased [Recovering/Resolving]
  - Iron deficiency [Recovering/Resolving]
  - Fistula [Recovering/Resolving]
  - Bloody discharge [Not Recovered/Not Resolved]
  - Fistula discharge [Not Recovered/Not Resolved]
  - Condition aggravated [Unknown]

NARRATIVE: CASE EVENT DATE: 20240101
